FAERS Safety Report 4661253-8 (Version None)
Quarter: 2005Q2

REPORT INFORMATION
  Report Type: 
  Country: None (occurrence: None)
  Receive Date: 20050429
  Receipt Date: 20040610
  Transmission Date: 20051028
  Serious: Yes (Other)
  Sender: FDA-Public Use
  Company Number: HQWYE439714JUN04

PATIENT
  Age: 16 Year
  Sex: Male
  Weight: 54 kg

DRUGS (8)
  1. PROTONIX [Suspect]
     Indication: UPPER GASTROINTESTINAL HAEMORRHAGE
     Dosage: 40 MG 1X PER 1 DAY, INTRAVENOUS
     Route: 042
     Dates: start: 20040603, end: 20040609
  2. CLINDAMYCIN [Concomitant]
  3. PROPRANOLOL [Concomitant]
  4. TYLENOL [Concomitant]
  5. HEPARIN [Concomitant]
  6. MORPHINE [Suspect]
  7. ATIVAN [Concomitant]
  8. REGLAN (METCLOPRAMIDE HYDROCHLORIDE) [Concomitant]

REACTIONS (1)
  - RHABDOMYOLYSIS [None]
